FAERS Safety Report 25239016 (Version 1)
Quarter: 2025Q2

REPORT INFORMATION
  Report Type: Spontaneous
  Country: ES (occurrence: ES)
  Receive Date: 20250425
  Receipt Date: 20250425
  Transmission Date: 20250716
  Serious: Yes (Hospitalization)
  Sender: AUROBINDO
  Company Number: ES-AEMPS-1656747

PATIENT
  Age: 61 Year
  Sex: Male

DRUGS (6)
  1. ATORVASTATIN [Suspect]
     Active Substance: ATORVASTATIN
     Indication: Hypercholesterolaemia
     Route: 048
     Dates: start: 20241213, end: 20250129
  2. BEMPEDOIC ACID\EZETIMIBE [Suspect]
     Active Substance: BEMPEDOIC ACID\EZETIMIBE
     Indication: Hypercholesterolaemia
     Dosage: 1 DOSAGE FORM, ONCE A DAY
     Route: 048
     Dates: start: 20241213, end: 20250129
  3. DELAFLOXACIN MEGLUMINE [Suspect]
     Active Substance: DELAFLOXACIN MEGLUMINE
     Indication: Device related infection
     Dosage: 450 MILLIGRAM, TWO TIMES A DAY (450MG EVERY 12H)
     Route: 048
     Dates: start: 20241106, end: 20250129
  4. CIPROFLOXACIN [Concomitant]
     Active Substance: CIPROFLOXACIN
     Indication: Device related infection
     Dosage: 750 MILLIGRAM, TWO TIMES A DAY (750MG EVERY 12H)
     Route: 048
     Dates: start: 20221223, end: 20241106
  5. DALBAVANCIN HYDROCHLORIDE [Concomitant]
     Active Substance: DALBAVANCIN HYDROCHLORIDE
     Indication: Device related infection
     Route: 042
     Dates: start: 20221223, end: 20241106
  6. DALBAVANCIN HYDROCHLORIDE [Concomitant]
     Active Substance: DALBAVANCIN HYDROCHLORIDE
     Route: 042
     Dates: start: 20250129, end: 20250129

REACTIONS (7)
  - Autonomic nervous system imbalance [Recovered/Resolved]
  - Malaise [Recovered/Resolved]
  - Pallor [Recovered/Resolved]
  - Presyncope [Recovered/Resolved]
  - Hypertension [Recovered/Resolved]
  - Tremor [Recovered/Resolved]
  - Decreased appetite [Recovered/Resolved]

NARRATIVE: CASE EVENT DATE: 20241229
